FAERS Safety Report 9475940 (Version 1)
Quarter: 2013Q3

REPORT INFORMATION
  Report Type: Spontaneous
  Country: US (occurrence: US)
  Receive Date: 20130826
  Receipt Date: 20130826
  Transmission Date: 20140515
  Serious: Yes (Other)
  Sender: FDA-Public Use
  Company Number: US-BAYER-2013-102531

PATIENT
  Age: 41 Year
  Sex: Female

DRUGS (7)
  1. YAZ [Suspect]
  2. PROTONIX [Concomitant]
     Dosage: 40 MG, DAILY
  3. CLARITIN [Concomitant]
     Dosage: DAILY
  4. LEVOTHYROXINE SODIUM [Concomitant]
     Dosage: DAILY
  5. ACIDOPHILUS [Concomitant]
     Dosage: DAILY
  6. ZOFRAN [Concomitant]
  7. TUSSIREX [Concomitant]
     Route: 042

REACTIONS (1)
  - Pulmonary embolism [None]
